FAERS Safety Report 7824421-X (Version None)
Quarter: 2011Q4

REPORT INFORMATION
  Report Type: 
  Country: None (occurrence: None)
  Receive Date: 20111018
  Receipt Date: 20111018
  Transmission Date: 20120403
  Serious: Yes (Other)
  Sender: FDA-Public Use
  Company Number: None

PATIENT
  Sex: Female
  Weight: 91.6266 kg

DRUGS (2)
  1. TRANDOLAPRIL AND VERAPAMIL HYDROCHLORIDE [Suspect]
     Indication: ATRIAL FIBRILLATION
     Dosage: 2-180 MG 1 DAILY BY MOUTH
     Route: 048
     Dates: start: 20110729
  2. TRANDOLAPRIL AND VERAPAMIL HYDROCHLORIDE [Suspect]
     Indication: HYPERTENSION
     Dosage: 2-180 MG 1 DAILY BY MOUTH
     Route: 048
     Dates: start: 20110729

REACTIONS (3)
  - ABDOMINAL DISCOMFORT [None]
  - GASTROINTESTINAL MOTILITY DISORDER [None]
  - PRODUCT SUBSTITUTION ISSUE [None]
